FAERS Safety Report 10701456 (Version 2)
Quarter: 2015Q1

REPORT INFORMATION
  Report Type: Spontaneous
  Country: US (occurrence: US)
  Receive Date: 20150109
  Receipt Date: 20150109
  Transmission Date: 20150721
  Serious: Yes (Hospitalization, Other)
  Sender: FDA-Public Use
  Company Number: US-009507513-0503USA03260

PATIENT
  Sex: Male
  Weight: 117.93 kg

DRUGS (5)
  1. COPAXONE [Concomitant]
     Active Substance: GLATIRAMER ACETATE
  2. ADDERALL [Concomitant]
     Active Substance: AMPHETAMINE ASPARTATE\AMPHETAMINE SULFATE\DEXTROAMPHETAMINE SACCHARATE\DEXTROAMPHETAMINE SULFATE
  3. VIOXX [Suspect]
     Active Substance: ROFECOXIB
     Indication: ROTATOR CUFF SYNDROME
     Dosage: 25 MG, QD
     Route: 048
     Dates: start: 20020821, end: 20030212
  4. VIOXX [Suspect]
     Active Substance: ROFECOXIB
     Indication: BURSITIS
     Dates: start: 200303, end: 200305
  5. EFFEXOR [Concomitant]
     Active Substance: VENLAFAXINE HYDROCHLORIDE

REACTIONS (48)
  - Ventricular fibrillation [Recovered/Resolved]
  - Cardiac arrest [Unknown]
  - Sudden cardiac death [Unknown]
  - Laceration [Unknown]
  - Anaemia [Unknown]
  - Acute myocardial infarction [Unknown]
  - Hyperlipidaemia [Unknown]
  - Cellulitis [Unknown]
  - Overdose [Recovering/Resolving]
  - Hypertension [Unknown]
  - Non-cardiac chest pain [Unknown]
  - Anxiety [Unknown]
  - Alcohol abuse [Unknown]
  - Aortic thrombosis [Unknown]
  - Gastric disorder [Unknown]
  - Gastric ulcer [Unknown]
  - Cellulitis [Unknown]
  - Coronary artery disease [Unknown]
  - Limb discomfort [Unknown]
  - Temperature intolerance [Unknown]
  - Encephalopathy [Unknown]
  - Depression [Unknown]
  - Thrombosis [Unknown]
  - Ventricular tachycardia [Recovered/Resolved]
  - Acute respiratory failure [Recovering/Resolving]
  - Suicide attempt [Recovering/Resolving]
  - Hypoaesthesia [Unknown]
  - Chest pain [Unknown]
  - Malaise [Unknown]
  - Acute myocardial infarction [Recovering/Resolving]
  - Ischaemic cardiomyopathy [Unknown]
  - Angina pectoris [Unknown]
  - Myocardial infarction [Recovering/Resolving]
  - Coronary artery occlusion [Recovering/Resolving]
  - Insomnia [Unknown]
  - Panic disorder [Unknown]
  - Fatigue [Unknown]
  - Myocardial infarction [Unknown]
  - Blood glucose increased [Unknown]
  - Angina unstable [Unknown]
  - Cardiac disorder [Unknown]
  - Myocardial infarction [Unknown]
  - Ischaemia [Unknown]
  - Gastrointestinal haemorrhage [Unknown]
  - Dizziness [Unknown]
  - Bipolar disorder [Unknown]
  - Obsessive thoughts [Unknown]
  - Adverse drug reaction [Unknown]

NARRATIVE: CASE EVENT DATE: 2002
